FAERS Safety Report 6102558-3 (Version None)
Quarter: 2009Q1

REPORT INFORMATION
  Report Type: 
  Country: None (occurrence: None)
  Receive Date: 20090304
  Receipt Date: 20080820
  Transmission Date: 20090719
  Serious: No
  Sender: FDA-Public Use
  Company Number: A0743537A

PATIENT
  Age: 70 Year
  Sex: Female

DRUGS (2)
  1. REQUIP [Suspect]
     Indication: MOVEMENT DISORDER
     Dosage: 2MG THREE TIMES PER DAY
     Route: 048
  2. THYROID MEDICATION [Concomitant]

REACTIONS (1)
  - MEMORY IMPAIRMENT [None]
